FAERS Safety Report 8286207-4 (Version None)
Quarter: 2012Q2

REPORT INFORMATION
  Report Type: 
  Country: None (occurrence: None)
  Receive Date: 20120416
  Receipt Date: 20120409
  Transmission Date: 20120825
  Serious: No
  Sender: FDA-Public Use
  Company Number: US-PFIZER INC-2012089418

PATIENT
  Sex: Female

DRUGS (1)
  1. PRISTIQ [Suspect]
     Dosage: 10 MG

REACTIONS (3)
  - DIZZINESS [None]
  - FEELING ABNORMAL [None]
  - DISTURBANCE IN ATTENTION [None]
